FAERS Safety Report 9353653 (Version 1)
Quarter: 2013Q2

REPORT INFORMATION
  Report Type: Spontaneous
  Country: US (occurrence: US)
  Receive Date: 20130618
  Receipt Date: 20130618
  Transmission Date: 20140414
  Serious: No
  Sender: FDA-Public Use
  Company Number: US-BAYER-2013-074647

PATIENT
  Sex: 0

DRUGS (1)
  1. GADAVIST [Suspect]
     Dosage: 1 MMOL GADOBUTROL /ML, ONCE
     Route: 042
     Dates: start: 20130521, end: 20130521

REACTIONS (1)
  - Vomiting [Recovered/Resolved]
